FAERS Safety Report 13909938 (Version 4)
Quarter: 2017Q4

REPORT INFORMATION
  Report Type: Report from Study
  Country: US (occurrence: US)
  Receive Date: 20170828
  Receipt Date: 20171009
  Transmission Date: 20180320
  Serious: Yes (Hospitalization)
  Sender: FDA-Public Use
  Company Number: US-ROCHE-1982872

PATIENT
  Age: 77 Year
  Sex: Male
  Weight: 95 kg

DRUGS (17)
  1. ACYCLOVIR. [Concomitant]
     Active Substance: ACYCLOVIR
     Indication: PROPHYLAXIS
     Route: 048
     Dates: start: 20170807
  2. MEROPENEM. [Concomitant]
     Active Substance: MEROPENEM
     Indication: INFECTION
     Route: 042
     Dates: start: 20170905, end: 20170906
  3. NYSTATIN. [Concomitant]
     Active Substance: NYSTATIN
     Indication: INFECTION
     Dosage: 50000 UNIT
     Route: 048
     Dates: start: 20170819, end: 20170906
  4. COBIMETINIB. [Suspect]
     Active Substance: COBIMETINIB
     Indication: ACUTE MYELOID LEUKAEMIA
     Dosage: DATE OF MOST RECENT DOSES PRIOR TO REDUCTION IN LVEF WERE 21/AUG/2017 DOSE RECEIVED: 40 MG?COBIMETIN
     Route: 048
     Dates: start: 20170803
  5. MIRALAX [Concomitant]
     Active Substance: POLYETHYLENE GLYCOL 3350
     Indication: CONSTIPATION
     Route: 048
     Dates: start: 20170809
  6. ERGOCALCIFEROL. [Concomitant]
     Active Substance: ERGOCALCIFEROL
     Indication: NUTRITIONAL SUPPLEMENTATION
     Dosage: 50000 UNIT
     Route: 048
     Dates: start: 20170902, end: 20170906
  7. SEVELAMER CARBONATE. [Concomitant]
     Active Substance: SEVELAMER CARBONATE
     Indication: TUMOUR LYSIS SYNDROME
     Route: 048
     Dates: start: 20170818, end: 20170906
  8. VANCOMYCIN [Concomitant]
     Active Substance: VANCOMYCIN
     Indication: INFECTION
     Route: 042
     Dates: start: 20170904, end: 20170905
  9. ALLOPURINOL. [Concomitant]
     Active Substance: ALLOPURINOL
     Indication: GOUT
     Route: 048
     Dates: start: 20170807
  10. ISAVUCONAZOLE [Concomitant]
     Active Substance: ISAVUCONAZOLE
     Indication: INFECTION
     Route: 048
     Dates: start: 20170904, end: 20170906
  11. BISACODYL. [Concomitant]
     Active Substance: BISACODYL
     Indication: DIARRHOEA
     Dosage: EVERYDAY
     Route: 047
     Dates: start: 20170901, end: 20170906
  12. LEVOFLOXACIN. [Concomitant]
     Active Substance: LEVOFLOXACIN
     Indication: PROPHYLAXIS
     Route: 048
     Dates: start: 20170710, end: 20170807
  13. ATORVASTATIN [Concomitant]
     Active Substance: ATORVASTATIN
     Route: 048
     Dates: start: 20170902, end: 20170906
  14. LIDOCAINE. [Concomitant]
     Active Substance: LIDOCAINE
     Indication: PAIN
     Dosage: 5 ML (MILLILITER; CM3)
     Route: 061
     Dates: start: 20170817, end: 20170906
  15. MAGNESIUM OXIDE. [Concomitant]
     Active Substance: MAGNESIUM OXIDE
     Route: 048
     Dates: start: 20170819, end: 20170906
  16. VENETOCLAX. [Suspect]
     Active Substance: VENETOCLAX
     Indication: ACUTE MYELOID LEUKAEMIA
     Dosage: DATE OF MOST RECENT DOSES PRIOR TO REDUCTION IN LVEF WERE 21/AUG/2017 DOSE RECEIVED: 800 MG?VENETOCL
     Route: 048
     Dates: start: 20170803
  17. HYDROXYUREA. [Concomitant]
     Active Substance: HYDROXYUREA
     Indication: PLATELET COUNT DECREASED
     Route: 048
     Dates: start: 20170724, end: 20170807

REACTIONS (1)
  - Ejection fraction decreased [Recovering/Resolving]

NARRATIVE: CASE EVENT DATE: 20170822
